FAERS Safety Report 6580104-8 (Version None)
Quarter: 2010Q1

REPORT INFORMATION
  Report Type: 
  Country: None (occurrence: None)
  Receive Date: 20100212
  Receipt Date: 20100203
  Transmission Date: 20100710
  Serious: No
  Sender: FDA-Public Use
  Company Number: US-B.I. PHARMACEUTICALS,INC./RIDGEFIELD-2010-BP-01345BP

PATIENT
  Age: 78 Year
  Sex: Male

DRUGS (4)
  1. MICARDIS HCT [Suspect]
     Indication: HYPERTENSION
     Route: 048
     Dates: start: 20091201, end: 20100201
  2. MICARDIS HCT [Suspect]
     Route: 048
     Dates: start: 20080101, end: 20091201
  3. AVODART [Concomitant]
     Indication: PROSTATIC DISORDER
  4. EYEDROPS [Concomitant]
     Indication: GLAUCOMA

REACTIONS (9)
  - ASTHENIA [None]
  - CONFUSIONAL STATE [None]
  - DIARRHOEA [None]
  - FATIGUE [None]
  - HEART RATE DECREASED [None]
  - HEART RATE IRREGULAR [None]
  - HYPOTENSION [None]
  - JAUNDICE [None]
  - SLUGGISHNESS [None]
